FAERS Safety Report 4726525-7 (Version None)
Quarter: 2005Q3

REPORT INFORMATION
  Report Type: 
  Country: None (occurrence: None)
  Receive Date: 20050726
  Receipt Date: 20050713
  Transmission Date: 20060218
  Serious: Yes (Other)
  Sender: FDA-Public Use
  Company Number: 2005101318

PATIENT
  Age: 30 Year
  Sex: Female

DRUGS (1)
  1. FELDENE [Suspect]
     Indication: PERIARTHRITIS
     Dosage: 40 MG (20 MG, 2 IN 1 D), ORAL
     Route: 048
     Dates: start: 20050708, end: 20050710

REACTIONS (1)
  - HAEMOPTYSIS [None]
